FAERS Safety Report 13434603 (Version 1)
Quarter: 2017Q2

REPORT INFORMATION
  Report Type: Spontaneous
  Country: US (occurrence: US)
  Receive Date: 20170412
  Receipt Date: 20170412
  Transmission Date: 20170830
  Serious: No
  Sender: FDA-Public Use
  Company Number: US-SA-2016SA065085

PATIENT
  Age: 66 Year
  Sex: Male
  Weight: 100.69 kg

DRUGS (3)
  1. ALLEGRA ALLERGY [Suspect]
     Active Substance: FEXOFENADINE HYDROCHLORIDE
     Indication: HYPERSENSITIVITY
     Dosage: ONSET DATE: 2 MONTHS AGO
     Route: 048
     Dates: start: 20151120, end: 20160315
  2. ALLEGRA ALLERGY [Suspect]
     Active Substance: FEXOFENADINE HYDROCHLORIDE
     Indication: HYPERSENSITIVITY
     Dosage: ONSET DATE: 2 MONTHS AGO
     Route: 048
     Dates: start: 2016, end: 20160530
  3. ALLEGRA ALLERGY [Suspect]
     Active Substance: FEXOFENADINE HYDROCHLORIDE
     Indication: HYPERSENSITIVITY
     Dosage: ONSET DATE: 2 MONTHS AGO
     Route: 048
     Dates: start: 20160603

REACTIONS (4)
  - Sinus headache [Not Recovered/Not Resolved]
  - Drug ineffective [Unknown]
  - Paranasal sinus hypersecretion [Not Recovered/Not Resolved]
  - Throat irritation [Not Recovered/Not Resolved]

NARRATIVE: CASE EVENT DATE: 20160501
